FAERS Safety Report 9020059 (Version 1)
Quarter: 2013Q1

REPORT INFORMATION
  Report Type: Spontaneous
  Country: US (occurrence: US)
  Receive Date: 20130119
  Receipt Date: 20130119
  Transmission Date: 20140127
  Serious: No
  Sender: FDA-Public Use
  Company Number: US-ALLERGAN-1211181US

PATIENT
  Sex: Male

DRUGS (1)
  1. BOTOX? [Suspect]
     Indication: MIGRAINE
     Dosage: 100 UNITS, UNK
     Route: 030
     Dates: start: 20120807, end: 20120807

REACTIONS (1)
  - Nausea [Recovered/Resolved]
